FAERS Safety Report 7277973-5 (Version None)
Quarter: 2011Q1

REPORT INFORMATION
  Report Type: 
  Country: None (occurrence: None)
  Receive Date: 20110207
  Receipt Date: 20110202
  Transmission Date: 20110831
  Serious: Yes (Other)
  Sender: FDA-Public Use
  Company Number: AU-ROCHE-757081

PATIENT

DRUGS (1)
  1. VALCYTE [Suspect]
     Route: 065

REACTIONS (1)
  - RENAL TUBULAR DISORDER [None]
